FAERS Safety Report 5084792-7 (Version None)
Quarter: 2006Q3

REPORT INFORMATION
  Report Type: 
  Country: None (occurrence: None)
  Receive Date: 20060821
  Receipt Date: 20060811
  Transmission Date: 20061208
  Serious: Yes (Hospitalization)
  Sender: FDA-Public Use
  Company Number: PHEH2006US10269

PATIENT
  Age: 70 Year
  Sex: Female

DRUGS (1)
  1. LOTREL [Suspect]
     Indication: BLOOD PRESSURE ABNORMAL
     Dosage: UNK, UNK
     Route: 048
     Dates: start: 20060401

REACTIONS (4)
  - ABDOMINAL PAIN UPPER [None]
  - CHROMATOPSIA [None]
  - RECTAL DISCHARGE [None]
  - VOMITING PROJECTILE [None]
